FAERS Safety Report 8775961 (Version 2)
Quarter: 2012Q4

REPORT INFORMATION
  Report Type: 
  Country: US (occurrence: US)
  Receive Date: 20120907
  Receipt Date: 20121101
  Transmission Date: 20130627
  Serious: Yes (Hospitalization, Other)
  Sender: FDA-Public Use
  Company Number: US-PFIZER INC-2012218548

PATIENT
  Age: 57 Year
  Sex: Female

DRUGS (3)
  1. PHENYTOIN SODIUM [Suspect]
     Indication: STATUS EPILEPTICUS
     Dosage: (thrice a week; with 3.5 hours for each session)
     Route: 042
  2. PHENOBARBITAL [Suspect]
     Indication: STATUS EPILEPTICUS
     Dosage: UNK
     Route: 042
  3. VALPROIC ACID [Concomitant]
     Indication: STATUS EPILEPTICUS
     Dosage: UNK
     Route: 042

REACTIONS (4)
  - Toxicity to various agents [Unknown]
  - Hypotension [Unknown]
  - Drug ineffective [Unknown]
  - Lactic acidosis [Unknown]
